FAERS Safety Report 4828202-0 (Version None)
Quarter: 2005Q4

REPORT INFORMATION
  Report Type: 
  Country: None (occurrence: None)
  Receive Date: 20051115
  Receipt Date: 20051104
  Transmission Date: 20060501
  Serious: Yes (Other)
  Sender: FDA-Public Use
  Company Number: BE-GLAXOSMITHKLINE-B0399728A

PATIENT
  Age: 82 Year
  Sex: Male

DRUGS (3)
  1. ZINNAT [Suspect]
     Route: 048
  2. MEDROL [Concomitant]
     Dosage: 32MG PER DAY
  3. ASPIRIN [Concomitant]
     Indication: PROPHYLAXIS
     Dosage: 100MG PER DAY

REACTIONS (4)
  - DYSPNOEA [None]
  - LUNG NEOPLASM MALIGNANT [None]
  - PALPITATIONS [None]
  - PANCYTOPENIA [None]
